FAERS Safety Report 15036054 (Version 2)
Quarter: 2019Q2

REPORT INFORMATION
  Report Type: Spontaneous
  Country: US (occurrence: US)
  Receive Date: 20180620
  Receipt Date: 20190521
  Transmission Date: 20190711
  Serious: No
  Sender: FDA-Public Use
  Company Number: US-SA-2018SA160358

PATIENT
  Age: 34 Year
  Sex: Female

DRUGS (22)
  1. CLINDAMYCIN. [Concomitant]
     Active Substance: CLINDAMYCIN
  2. IRON [Concomitant]
     Active Substance: IRON
  3. IBUPROFEN. [Concomitant]
     Active Substance: IBUPROFEN
  4. FLUCONAZOLE. [Concomitant]
     Active Substance: FLUCONAZOLE
  5. METRONIDAZOLE. [Concomitant]
     Active Substance: METRONIDAZOLE
  6. DUPIXENT [Suspect]
     Active Substance: DUPILUMAB
     Dosage: 300 MG, QOW
     Route: 058
     Dates: start: 20180326
  7. FLUOCINONIDE. [Concomitant]
     Active Substance: FLUOCINONIDE
  8. FLUTICASONE. [Concomitant]
     Active Substance: FLUTICASONE
  9. DESONIDE. [Concomitant]
     Active Substance: DESONIDE
  10. PREDNISOLONE. [Concomitant]
     Active Substance: PREDNISOLONE
  11. HYDROXYZINE [Concomitant]
     Active Substance: HYDROXYZINE HYDROCHLORIDE
  12. MUPIROCIN. [Concomitant]
     Active Substance: MUPIROCIN
  13. OXYCOD [OXYCODONE HYDROCHLORIDE] [Concomitant]
  14. TRIAMCINOLONE [Concomitant]
     Active Substance: TRIAMCINOLONE
  15. CEPHALEXINE [Concomitant]
     Active Substance: CEPHALEXIN
  16. KETOTIF [Concomitant]
  17. LAMOTRIGINE. [Concomitant]
     Active Substance: LAMOTRIGINE
  18. MONTELUKAST [Concomitant]
     Active Substance: MONTELUKAST SODIUM
  19. PREPLUS B12 [Concomitant]
  20. CODEINE [Concomitant]
     Active Substance: CODEINE
  21. OLOPATADINE. [Concomitant]
     Active Substance: OLOPATADINE
  22. SERTRALINE [Concomitant]
     Active Substance: SERTRALINE HYDROCHLORIDE

REACTIONS (1)
  - Alopecia [Not Recovered/Not Resolved]

NARRATIVE: CASE EVENT DATE: 201804
